FAERS Safety Report 7749581-0 (Version None)
Quarter: 2011Q3

REPORT INFORMATION
  Report Type: 
  Country: None (occurrence: None)
  Receive Date: 20110914
  Receipt Date: 20110906
  Transmission Date: 20111222
  Serious: Yes (Death)
  Sender: FDA-Public Use
  Company Number: DE-UCBSA-040842

PATIENT

DRUGS (1)
  1. NEUPRO [Suspect]
     Route: 062

REACTIONS (1)
  - DEATH [None]
